FAERS Safety Report 5818012-X (Version None)
Quarter: 2008Q3

REPORT INFORMATION
  Report Type: 
  Country: None (occurrence: None)
  Receive Date: 20080722
  Receipt Date: 20080717
  Transmission Date: 20090109
  Serious: Yes (Hospitalization)
  Sender: FDA-Public Use
  Company Number: GB-BOEHRINGER INGELHEIM GMBH, GERMANY-2008-UK-01316UK

PATIENT
  Sex: Male
  Weight: 84.8 kg

DRUGS (3)
  1. SPIRIVA [Suspect]
     Indication: CHRONIC OBSTRUCTIVE PULMONARY DISEASE
     Route: 055
     Dates: start: 20080418
  2. ALBUTEROL [Concomitant]
     Indication: CHRONIC OBSTRUCTIVE PULMONARY DISEASE
     Dosage: 4PUFFS 4 TIMES DAILY
     Route: 055
     Dates: start: 20030101
  3. OMEPRAZOLE [Concomitant]
     Indication: DYSPEPSIA
     Dosage: 1 CAPSULE A DAY
     Route: 048
     Dates: start: 20070901

REACTIONS (2)
  - DYSPNOEA [None]
  - NASOPHARYNGITIS [None]
